FAERS Safety Report 9672052 (Version 1)
Quarter: 2013Q4

REPORT INFORMATION
  Report Type: Spontaneous
  Country: GB (occurrence: None)
  Receive Date: 20131104
  Receipt Date: 20131104
  Transmission Date: 20140711
  Serious: Yes (Hospitalization, Disabling)
  Sender: FDA-Public Use
  Company Number: AUR-APL-2013-08947

PATIENT
  Age: 57 Year
  Sex: Female
  Weight: 81 kg

DRUGS (5)
  1. GABAPENTIN (GABAPENTIN) [Suspect]
     Indication: PRODUCT USED FOR UNKNOWN INDICATION
     Dosage: 200 MG (100 MG, 2 IN 1 D), ORAL
     Route: 048
     Dates: start: 20130604, end: 20130609
  2. ATENOLOL (ATENOLOL) [Concomitant]
  3. CODEINE (CODEINE) [Concomitant]
  4. LAXIDO (ELECTROLYTES NOS W/ MACROGOL) [Concomitant]
  5. LISINOPRIL (LISINOPRIL) [Concomitant]

REACTIONS (4)
  - Paraesthesia [None]
  - Dyskinesia [None]
  - Asthenia [None]
  - Abasia [None]
